FAERS Safety Report 17876403 (Version 6)
Quarter: 2020Q4

REPORT INFORMATION
  Report Type: Report from Study
  Country: CO (occurrence: CO)
  Receive Date: 20200609
  Receipt Date: 20201221
  Transmission Date: 20210113
  Serious: Yes (Life-Threatening, Hospitalization, Other)
  Sender: FDA-Public Use
  Company Number: NVSC2020CO158196

PATIENT
  Sex: Female

DRUGS (3)
  1. SANDOSTATIN LAR DEPOT [Suspect]
     Active Substance: OCTREOTIDE ACETATE
     Indication: GASTROENTEROPANCREATIC NEUROENDOCRINE TUMOUR DISEASE
     Dosage: 30 MG, QMO
     Route: 030
     Dates: start: 2019
  2. SANDOSTATIN LAR DEPOT [Suspect]
     Active Substance: OCTREOTIDE ACETATE
  3. SANDOSTATIN LAR DEPOT [Suspect]
     Active Substance: OCTREOTIDE ACETATE

REACTIONS (18)
  - Hypoglycaemia [Unknown]
  - Seizure [Unknown]
  - Movement disorder [Unknown]
  - Pain [Unknown]
  - Vomiting [Unknown]
  - Syncope [Unknown]
  - General physical health deterioration [Unknown]
  - Anaemia [Unknown]
  - Haematochezia [Unknown]
  - Abdominal pain [Unknown]
  - Hypotension [Unknown]
  - Porphyria acute [Unknown]
  - Oxygen saturation decreased [Unknown]
  - Arthralgia [Unknown]
  - Bone pain [Unknown]
  - Diarrhoea [Unknown]
  - Depression [Unknown]
  - Brain neoplasm [Unknown]
